FAERS Safety Report 20846137 (Version 1)
Quarter: 2022Q2

REPORT INFORMATION
  Report Type: Spontaneous
  Country: US (occurrence: US)
  Receive Date: 20220518
  Receipt Date: 20220518
  Transmission Date: 20220720
  Serious: No
  Sender: FDA-Public Use
  Company Number: US-PFIZER INC-202200149418

PATIENT
  Age: 24 Year
  Sex: Male
  Weight: 81.65 kg

DRUGS (3)
  1. DEPO-MEDROL [Suspect]
     Active Substance: METHYLPREDNISOLONE ACETATE
     Indication: Pain
     Dosage: UNK
     Route: 042
     Dates: start: 202110
  2. DEPO-MEDROL [Suspect]
     Active Substance: METHYLPREDNISOLONE ACETATE
     Indication: Cerebral palsy
     Dosage: UNK
     Route: 042
     Dates: start: 20211223
  3. DEPO-MEDROL [Suspect]
     Active Substance: METHYLPREDNISOLONE ACETATE
     Indication: Nerve block

REACTIONS (7)
  - Drug ineffective [Unknown]
  - Underdose [Unknown]
  - Pruritus [Not Recovered/Not Resolved]
  - Erythema [Not Recovered/Not Resolved]
  - Swelling face [Unknown]
  - Oral pruritus [Unknown]
  - Lip pruritus [Unknown]

NARRATIVE: CASE EVENT DATE: 20211226
